FAERS Safety Report 8889743 (Version 2)
Quarter: 2013Q3

REPORT INFORMATION
  Report Type: Spontaneous
  Country: SA (occurrence: SA)
  Receive Date: 20121107
  Receipt Date: 20130911
  Transmission Date: 20140515
  Serious: Yes (Death, Other)
  Sender: FDA-Public Use
  Company Number: SA-JNJFOC-20121101184

PATIENT
  Sex: 0

DRUGS (5)
  1. REOPRO [Suspect]
     Indication: PERCUTANEOUS CORONARY INTERVENTION
     Dosage: 0.25 MCG/KG
     Route: 022
  2. REOPRO [Suspect]
     Indication: PERCUTANEOUS CORONARY INTERVENTION
     Dosage: OVER 12 HOURS
     Route: 040
  3. REOPRO [Suspect]
     Indication: PERCUTANEOUS CORONARY INTERVENTION
     Dosage: 0.25 MCG/KG AND MAINTANANCE DOSE OF 0.125 MCG/KG OVER 12 HOURS
     Route: 040
  4. REOPRO [Suspect]
     Indication: PERCUTANEOUS CORONARY INTERVENTION
     Dosage: OVER 12 HOURS
     Route: 040
  5. REOPRO [Suspect]
     Indication: PERCUTANEOUS CORONARY INTERVENTION
     Dosage: 0.25 MCG/KG AND MAINTANANCE DOSE OF 0.125 MCG/KG OVER 12 HOURS
     Route: 040

REACTIONS (5)
  - Cardiac death [Fatal]
  - Death [Fatal]
  - Thrombosis in device [Unknown]
  - Incorrect route of drug administration [Unknown]
  - Drug ineffective [Unknown]
